FAERS Safety Report 9355663 (Version 1)
Quarter: 2013Q2

REPORT INFORMATION
  Report Type: Report from Study
  Country: US (occurrence: US)
  Receive Date: 20130619
  Receipt Date: 20130619
  Transmission Date: 20140414
  Serious: Yes (Hospitalization)
  Sender: FDA-Public Use
  Company Number: US-BRISTOL-MYERS SQUIBB COMPANY-19004761

PATIENT
  Age: 66 Year
  Sex: Male
  Weight: 58.05 kg

DRUGS (12)
  1. PACLITAXEL [Suspect]
     Indication: NON-SMALL CELL LUNG CANCER
     Route: 042
     Dates: start: 20130521
  2. CARBOPLATIN [Suspect]
     Indication: NON-SMALL CELL LUNG CANCER
     Route: 042
     Dates: start: 20130521
  3. NECITUMUMAB [Suspect]
     Indication: NON-SMALL CELL LUNG CANCER
     Route: 042
     Dates: start: 20130521
  4. METHYLDOPA + HCTZ [Concomitant]
     Indication: COUGH
     Dosage: ONGOING
     Dates: start: 20130411
  5. MEGACE [Concomitant]
     Dosage: ONGOING
     Dates: start: 20130503
  6. OMEPRAZOLE [Concomitant]
     Indication: GASTROOESOPHAGEAL REFLUX DISEASE
     Dosage: ONGOING
     Dates: start: 20130411
  7. ONDANSETRON [Concomitant]
     Indication: NAUSEA
     Dates: start: 20130521
  8. MACROGOL [Concomitant]
     Indication: CONSTIPATION
     Dates: start: 20130515
  9. RESTORIL [Concomitant]
     Indication: INSOMNIA
     Dosage: ONGOING
     Dates: start: 20130503
  10. PROCHLORPERAZINE [Concomitant]
     Indication: NAUSEA
     Dosage: ONGOING
     Dates: start: 20130521
  11. HYDROCODONE [Concomitant]
     Indication: PAIN
     Dosage: ONGOING
     Dates: start: 20130217
  12. NEULASTA [Concomitant]
     Indication: NEUTROPENIA
     Dates: start: 20130521

REACTIONS (4)
  - Neutropenia [Recovering/Resolving]
  - Hyperglycaemia [Recovered/Resolved]
  - Blood potassium decreased [Unknown]
  - Pneumonia [Not Recovered/Not Resolved]
